FAERS Safety Report 8016517 (Version 2)
Quarter: 2013Q1

REPORT INFORMATION
  Report Type: Spontaneous
  Country: US (occurrence: US)
  Receive Date: 20110630
  Receipt Date: 20130116
  Transmission Date: 20140127
  Serious: Yes (Hospitalization, Other)
  Sender: FDA-Public Use
  Company Number: US-AMGEN-USASP2011031111

PATIENT
  Age: 60 Year
  Sex: Female

DRUGS (3)
  1. ENBREL [Suspect]
     Indication: RHEUMATOID ARTHRITIS
     Dosage: 50 MG, QWK
     Dates: start: 201103
  2. ENBREL [Suspect]
     Dates: start: 201101
  3. ENBREL [Suspect]

REACTIONS (8)
  - Rheumatoid arthritis [Recovered/Resolved]
  - Incisional drainage [Recovered/Resolved]
  - Incision site haemorrhage [Recovered/Resolved]
  - Localised infection [Recovered/Resolved]
  - Arthralgia [Not Recovered/Not Resolved]
  - Fall [Unknown]
  - Muscle injury [Not Recovered/Not Resolved]
  - Pain [Not Recovered/Not Resolved]
